FAERS Safety Report 6535584-0 (Version None)
Quarter: 2010Q1

REPORT INFORMATION
  Report Type: 
  Country: None (occurrence: None)
  Receive Date: 20100105
  Receipt Date: 20091211
  Transmission Date: 20100710
  Serious: Yes (Death)
  Sender: FDA-Public Use
  Company Number: 2009S1000104

PATIENT
  Age: 1 Day
  Sex: Female

DRUGS (2)
  1. INOMAX [Suspect]
     Indication: OXYGEN SATURATION
     Dosage: 20 PPM; CONT; INH
     Route: 055
     Dates: start: 20091210, end: 20091210
  2. INOVENT (DELIVERY SYSTEM) [Suspect]
     Dosage: 20 PPM; CONT; INH
     Dates: start: 20091210, end: 20091210

REACTIONS (4)
  - DEVICE BREAKAGE [None]
  - HEART RATE DECREASED [None]
  - OXYGEN SATURATION DECREASED [None]
  - SEPSIS [None]
